FAERS Safety Report 17284716 (Version 1)
Quarter: 2020Q1

REPORT INFORMATION
  Report Type: Spontaneous
  Country: RU (occurrence: RU)
  Receive Date: 20200117
  Receipt Date: 20200117
  Transmission Date: 20200409
  Serious: Yes (Other)
  Sender: FDA-Public Use
  Company Number: NVSC2020RU010346

PATIENT
  Sex: Female

DRUGS (2)
  1. DOCETAXEL. [Suspect]
     Active Substance: DOCETAXEL
     Indication: ANGIOSARCOMA
     Dosage: 75 MG/M2 (ON DAY 8 OF THE 3 WEEKS CYCLE)
     Route: 065
  2. GEMCITABINE. [Concomitant]
     Active Substance: GEMCITABINE
     Indication: ANGIOSARCOMA
     Dosage: 900 MG/M2 (ON DAY 1 AND 8 OF THE 3 WEEKS CYCLE)
     Route: 065

REACTIONS (1)
  - Polyneuropathy [Unknown]
